FAERS Safety Report 5659033-X (Version None)
Quarter: 2008Q1

REPORT INFORMATION
  Report Type: 
  Country: None (occurrence: None)
  Receive Date: 20080310
  Receipt Date: 20071105
  Transmission Date: 20080703
  Serious: No
  Sender: FDA-Public Use
  Company Number: US-BAYER-200712915BCC

PATIENT
  Sex: Female
  Weight: 52 kg

DRUGS (7)
  1. ALEVE [Suspect]
     Indication: ARTHRALGIA
     Route: 048
     Dates: start: 20070101
  2. NEXIUM [Concomitant]
  3. ASPIRIN [Concomitant]
  4. CRESTOR [Concomitant]
  5. PREMARIN [Concomitant]
  6. LEVOTHYROXINE SODIUM [Concomitant]
  7. TRIAMTERENE AND HYDROCHLOROTHIAZIDE [Concomitant]

REACTIONS (1)
  - HIATUS HERNIA [None]
